FAERS Safety Report 5088424-3 (Version None)
Quarter: 2006Q3

REPORT INFORMATION
  Report Type: 
  Country: None (occurrence: None)
  Receive Date: 20060821
  Receipt Date: 20060808
  Transmission Date: 20061208
  Serious: Yes (Hospitalization)
  Sender: FDA-Public Use
  Company Number: 163-C5013-06080350

PATIENT
  Age: 82 Year
  Sex: Male

DRUGS (8)
  1. REVLIMID [Suspect]
     Indication: MULTIPLE MYELOMA
     Dosage: ORAL
     Route: 048
     Dates: start: 20060412, end: 20060504
  2. REVLIMID [Suspect]
     Indication: MULTIPLE MYELOMA
     Dosage: ORAL
     Route: 048
     Dates: start: 20060501
  3. DEXAMETHASONE TAB [Suspect]
     Indication: MULTIPLE MYELOMA
  4. TOPROL-XL [Concomitant]
  5. ALDACTONE [Concomitant]
  6. NEURONTIN [Concomitant]
  7. PROTONIX [Concomitant]
  8. LISINOPRIL [Concomitant]

REACTIONS (1)
  - HYPERCALCAEMIA [None]
